FAERS Safety Report 4573497-4 (Version None)
Quarter: 2005Q1

REPORT INFORMATION
  Report Type: 
  Country: None (occurrence: None)
  Receive Date: 20050208
  Receipt Date: 20040831
  Transmission Date: 20050727
  Serious: No
  Sender: FDA-Public Use
  Company Number: US-GLAXOSMITHKLINE-A0524075A

PATIENT
  Age: 49 Year
  Sex: Male

DRUGS (7)
  1. PAXIL [Suspect]
     Indication: DEPRESSION
     Dosage: 20MG PER DAY
     Route: 048
     Dates: start: 20030901
  2. ACTOS [Concomitant]
  3. ASPIRIN [Concomitant]
  4. LANTUS [Concomitant]
  5. CODEINE SUL TAB [Concomitant]
  6. VALIUM [Concomitant]
  7. RESTORIL [Concomitant]

REACTIONS (2)
  - DRY MOUTH [None]
  - SEXUAL DYSFUNCTION [None]
